FAERS Safety Report 23709784 (Version 2)
Quarter: 2024Q2

REPORT INFORMATION
  Report Type: Spontaneous
  Country: US (occurrence: US)
  Receive Date: 20240405
  Receipt Date: 20240423
  Transmission Date: 20240715
  Serious: Yes (Other)
  Sender: FDA-Public Use
  Company Number: US-ALKEM LABORATORIES LIMITED-US-ALKEM-2024-06669

PATIENT
  Age: 32 Year
  Sex: Male

DRUGS (1)
  1. FINASTERIDE [Suspect]
     Active Substance: FINASTERIDE
     Indication: Alopecia
     Dosage: 1 MILLIGRAM (FROM APPROXIMATELY TWO AND A HALF YEARS)
     Route: 048
     Dates: end: 20240202

REACTIONS (8)
  - Meibomian gland dysfunction [Recovering/Resolving]
  - Dry eye [Recovering/Resolving]
  - Dry mouth [Unknown]
  - Insomnia [Unknown]
  - Panic disorder [Unknown]
  - Pollakiuria [Unknown]
  - Dysbiosis [Unknown]
  - Weight increased [Unknown]

NARRATIVE: CASE EVENT DATE: 20230401
